FAERS Safety Report 21169672 (Version 1)
Quarter: 2022Q3

REPORT INFORMATION
  Report Type: Report from Study
  Country: US (occurrence: US)
  Receive Date: 20220804
  Receipt Date: 20220804
  Transmission Date: 20221026
  Serious: Yes (Hospitalization, Other)
  Sender: FDA-Public Use
  Company Number: US-CELGENE-USA-20220203175

PATIENT
  Age: 83 Year
  Sex: Female
  Weight: 44.45 kg

DRUGS (14)
  1. REVLIMID [Suspect]
     Active Substance: LENALIDOMIDE
     Indication: Myelodysplastic syndrome
     Dosage: 2.5 MILLIGRAM
     Route: 048
     Dates: start: 2019
  2. REVLIMID [Suspect]
     Active Substance: LENALIDOMIDE
     Indication: Refractory anaemia with an excess of blasts
     Dosage: 2.5 MILLIGRAM
     Route: 048
     Dates: start: 202109
  3. VIDAZA [Concomitant]
     Active Substance: AZACITIDINE
     Indication: Product used for unknown indication
     Dosage: FREQUENCY TEXT: NOT PROVIDED
     Route: 065
  4. JANUVIA [Concomitant]
     Active Substance: SITAGLIPTIN PHOSPHATE
  5. ATIVAN [Concomitant]
     Active Substance: LORAZEPAM
  6. PROCHLORPERAZINE MALEATE [Concomitant]
     Active Substance: PROCHLORPERAZINE MALEATE
  7. ACETAMINOPHEN [Concomitant]
     Active Substance: ACETAMINOPHEN
  8. METFORMIN HYDROCHLORIDE [Concomitant]
     Active Substance: METFORMIN HYDROCHLORIDE
     Dosage: METFORMIN ER GASTRIC
  9. CALCIUM 250 [Concomitant]
  10. METOPROLOL SUCCINATE [Concomitant]
     Active Substance: METOPROLOL SUCCINATE
  11. ONDANSETRON [Concomitant]
     Active Substance: ONDANSETRON
  12. AMLODIPINE BESYLATE;BENAZEPRIL [Concomitant]
  13. VIT D3 250 [Concomitant]
  14. XANAX [Concomitant]
     Active Substance: ALPRAZOLAM

REACTIONS (11)
  - Blood potassium decreased [Unknown]
  - Illness [Unknown]
  - Balance disorder [Unknown]
  - Dementia [Unknown]
  - Blood magnesium decreased [Unknown]
  - Haemoglobin decreased [Unknown]
  - Fall [Unknown]
  - Urinary tract infection [Unknown]
  - Product dose omission issue [Unknown]
  - Asthenia [Unknown]
  - Off label use [Unknown]
